FAERS Safety Report 19010775 (Version 3)
Quarter: 2021Q2

REPORT INFORMATION
  Report Type: Spontaneous
  Country: JP (occurrence: JP)
  Receive Date: 20210315
  Receipt Date: 20210416
  Transmission Date: 20210717
  Serious: Yes (Hospitalization, Other)
  Sender: FDA-Public Use
  Company Number: JP-ROCHE-2788146

PATIENT
  Age: 78 Year
  Sex: Male

DRUGS (3)
  1. URSO [Concomitant]
     Active Substance: URSODIOL
     Dosage: DOSAGE IS UNCERTAIN.
     Route: 065
  2. TECENTRIQ [Suspect]
     Active Substance: ATEZOLIZUMAB
     Indication: HEPATOCELLULAR CARCINOMA
     Route: 041
     Dates: start: 20201217, end: 20210107
  3. AVASTIN [Suspect]
     Active Substance: BEVACIZUMAB
     Indication: HEPATOCELLULAR CARCINOMA
     Dosage: .
     Route: 041
     Dates: start: 20201217

REACTIONS (10)
  - Pneumonia [Recovering/Resolving]
  - Pleural effusion [Recovering/Resolving]
  - Dyspnoea [Recovering/Resolving]
  - Deep vein thrombosis [Unknown]
  - Pseudomembranous colitis [Unknown]
  - Vascular device infection [Recovering/Resolving]
  - Gastrointestinal perforation [Recovering/Resolving]
  - Ascites [Unknown]
  - Atelectasis [Unknown]
  - Ileus [Unknown]

NARRATIVE: CASE EVENT DATE: 20210202
